FAERS Safety Report 8902552 (Version 2)
Quarter: 2012Q4

REPORT INFORMATION
  Report Type: 
  Country: US (occurrence: US)
  Receive Date: 20121112
  Receipt Date: 20121120
  Transmission Date: 20130627
  Serious: Yes (Other)
  Sender: FDA-Public Use
  Company Number: US-ROCHE-1153212

PATIENT
  Age: 55 Year
  Sex: Female
  Weight: 77.18 kg

DRUGS (2)
  1. RITUXAN [Suspect]
     Indication: CHRONIC LYMPHOCYTIC LEUKAEMIA
     Route: 042
     Dates: start: 20121024, end: 20121024
  2. BENDAMUSTINE [Suspect]
     Indication: CHRONIC LYMPHOCYTIC LEUKAEMIA
     Route: 042
     Dates: start: 20121024, end: 20121026

REACTIONS (5)
  - Rash morbilliform [Recovered/Resolved]
  - Pruritus [None]
  - Burning sensation [None]
  - Rash generalised [None]
  - Inflammation [None]
